FAERS Safety Report 12620365 (Version 1)
Quarter: 2016Q3

REPORT INFORMATION
  Report Type: Spontaneous
  Country: US (occurrence: US)
  Receive Date: 20160803
  Receipt Date: 20160803
  Transmission Date: 20161109
  Serious: No
  Sender: FDA-Public Use
  Company Number: US-ASTRAZENECA-2016SE76322

PATIENT
  Sex: Female

DRUGS (2)
  1. GENERIC BRANDS OF NEXIUM [Suspect]
     Active Substance: ESOMEPRAZOLE MAGNESIUM
     Route: 048
  2. NEXIUM [Suspect]
     Active Substance: ESOMEPRAZOLE MAGNESIUM
     Route: 048

REACTIONS (4)
  - Malaise [Unknown]
  - Drug ineffective [Unknown]
  - Product substitution issue [Unknown]
  - Intentional product misuse [Unknown]
